FAERS Safety Report 4505535-9 (Version None)
Quarter: 2004Q4

REPORT INFORMATION
  Report Type: 
  Country: None (occurrence: None)
  Receive Date: 20041018
  Receipt Date: 20040803
  Transmission Date: 20050328
  Serious: No
  Sender: FDA-Public Use
  Company Number: 208267

PATIENT

DRUGS (1)
  1. XOLAIR [Suspect]
     Indication: ASTHMA

REACTIONS (1)
  - BLOOD GLUCOSE DECREASED [None]
